FAERS Safety Report 10130001 (Version 2)
Quarter: 2014Q2

REPORT INFORMATION
  Report Type: Report from Study
  Country: BR (occurrence: BR)
  Receive Date: 20140428
  Receipt Date: 20140526
  Transmission Date: 20141212
  Serious: Yes (Hospitalization, Other)
  Sender: FDA-Public Use
  Company Number: PHHY2014BR049935

PATIENT
  Sex: Male
  Weight: 100 kg

DRUGS (6)
  1. DIOVAN HCT [Suspect]
     Indication: HYPERTENSION
     Dosage: 1 DF (320 MG VALS/25 MG AMLO), DAILY
     Route: 048
  2. DIOVAN HCT [Suspect]
     Dosage: 1 DF (320 MG VALS/25 MG AMLO)
  3. AMLODIPINE [Concomitant]
     Indication: HYPERTENSION
     Dosage: 10 MG, UNK
  4. PURAN [Concomitant]
     Indication: THYROID DISORDER
     Dosage: 100 MG, UNK
  5. GLIFAGE XR [Concomitant]
     Indication: BLOOD GLUCOSE ABNORMAL
     Dosage: 500 MG, UNK
  6. SIMVASTATIN [Concomitant]
     Indication: BLOOD GLUCOSE ABNORMAL
     Dosage: 20 MG, UNK

REACTIONS (3)
  - Cardiac disorder [Recovered/Resolved]
  - Arrhythmia [Recovered/Resolved]
  - Blood pressure increased [Recovered/Resolved]
